FAERS Safety Report 5192457-6 (Version None)
Quarter: 2006Q4

REPORT INFORMATION
  Report Type: 
  Country: None (occurrence: None)
  Receive Date: 20061220
  Receipt Date: 20061213
  Transmission Date: 20070319
  Serious: Yes (Other)
  Sender: FDA-Public Use
  Company Number: 2006150360

PATIENT
  Age: 57 Year
  Sex: Female
  Weight: 68.0396 kg

DRUGS (3)
  1. SERTRALINE [Suspect]
     Indication: INSOMNIA
     Dosage: 50 MG (50 MG, 1 IN 1 D), ORAL
     Route: 048
     Dates: start: 20061020, end: 20061031
  2. ZOLOFT [Suspect]
     Indication: INSOMNIA
     Dosage: 50 MG (50 MG, 1 IN 1 D), ORAL
     Route: 048
  3. NEXIUM [Concomitant]

REACTIONS (7)
  - BONE DENSITY DECREASED [None]
  - CRYING [None]
  - DRUG INEFFECTIVE [None]
  - INFECTIOUS MONONUCLEOSIS [None]
  - MAJOR DEPRESSION [None]
  - PERICARDITIS [None]
  - PHARMACEUTICAL PRODUCT COMPLAINT [None]
